FAERS Safety Report 4427570-1 (Version None)
Quarter: 2004Q3

REPORT INFORMATION
  Report Type: 
  Country: None (occurrence: None)
  Receive Date: 20040812
  Receipt Date: 20040805
  Transmission Date: 20050211
  Serious: Yes (Hospitalization)
  Sender: FDA-Public Use
  Company Number: HQWYE992505AUG04

PATIENT
  Age: 67 Year
  Sex: Female

DRUGS (1)
  1. ARTANE [Suspect]
     Indication: PARKINSONISM

REACTIONS (1)
  - HYPOTONIA [None]
